FAERS Safety Report 9675523 (Version 4)
Quarter: 2014Q1

REPORT INFORMATION
  Report Type: Report from Study
  Country: US (occurrence: US)
  Receive Date: 20131107
  Receipt Date: 20140224
  Transmission Date: 20141002
  Serious: Yes (Other)
  Sender: FDA-Public Use
  Company Number: US-SA-2013SA113626

PATIENT
  Age: 45 Year
  Sex: Female

DRUGS (1)
  1. AUBAGIO [Suspect]
     Indication: MULTIPLE SCLEROSIS
     Route: 048
     Dates: start: 20130905

REACTIONS (3)
  - Cholelithiasis [Recovering/Resolving]
  - Alopecia [Not Recovered/Not Resolved]
  - Mass [Unknown]
